FAERS Safety Report 14971787 (Version 4)
Quarter: 2019Q4

REPORT INFORMATION
  Report Type: Report from Study
  Country: JP (occurrence: JP)
  Receive Date: 20180605
  Receipt Date: 20191008
  Transmission Date: 20200122
  Serious: Yes (Hospitalization, Other)
  Sender: FDA-Public Use
  Company Number: JP-ALXN-A201806663AA

PATIENT

DRUGS (7)
  1. SOLIRIS [Suspect]
     Active Substance: ECULIZUMAB
     Dosage: 900 MG, UNK
     Route: 042
     Dates: start: 20160414
  2. SOLIRIS [Suspect]
     Active Substance: ECULIZUMAB
     Indication: PAROXYSMAL NOCTURNAL HAEMOGLOBINURIA
     Dosage: 600 MG, QW
     Route: 042
     Dates: start: 20160406, end: 20160406
  3. FLUCONAZOLE. [Concomitant]
     Active Substance: FLUCONAZOLE
     Indication: INFECTION PROPHYLAXIS
     Dosage: 200 MG, DAILY
     Route: 065
     Dates: start: 20171227
  4. MAGMITT [Concomitant]
     Active Substance: MAGNESIUM OXIDE
     Indication: PRODUCT USED FOR UNKNOWN INDICATION
     Dosage: 1980 MG, DAILY
     Route: 065
     Dates: start: 20100707
  5. DRUG NOT ADMINISTERED [Concomitant]
     Active Substance: UNSPECIFIED INGREDIENT
     Indication: INFECTION PROPHYLAXIS
     Dosage: 5 ML, DAILY
     Route: 065
     Dates: start: 20180221
  6. EXJADE [Concomitant]
     Active Substance: DEFERASIROX
     Indication: PRODUCT USED FOR UNKNOWN INDICATION
     Dosage: 750 ?G, DAILY
     Route: 065
     Dates: start: 20130202
  7. NEXIUM [Concomitant]
     Active Substance: ESOMEPRAZOLE MAGNESIUM
     Indication: PROPHYLAXIS AGAINST GASTROINTESTINAL ULCER
     Dosage: 20 MG, DAILY
     Route: 065
     Dates: start: 20180219

REACTIONS (3)
  - Interstitial lung disease [Recovering/Resolving]
  - Inappropriate schedule of product administration [Unknown]
  - Sepsis [Recovered/Resolved]

NARRATIVE: CASE EVENT DATE: 20170921
